FAERS Safety Report 12386161 (Version 3)
Quarter: 2017Q1

REPORT INFORMATION
  Report Type: Spontaneous
  Country: CH (occurrence: SA)
  Receive Date: 20160519
  Receipt Date: 20170330
  Transmission Date: 20170428
  Serious: Yes (Life-Threatening)
  Sender: FDA-Public Use
  Company Number: CH-LPDUSPRD-20160408

PATIENT
  Age: 37 Year
  Sex: Female
  Weight: 69 kg

DRUGS (1)
  1. FERINJECT [Suspect]
     Active Substance: FERRIC CARBOXYMALTOSE
     Dosage: 500MG/250 ML OVER 3 HOURS
     Route: 041
     Dates: start: 20160502, end: 20160502

REACTIONS (11)
  - Incorrect product storage [Unknown]
  - Drug monitoring procedure not performed [Unknown]
  - Respiratory distress [Unknown]
  - Pruritus generalised [Unknown]
  - Urticaria [Unknown]
  - Rash [Unknown]
  - Headache [Unknown]
  - Angioedema [Unknown]
  - Dyspnoea [Unknown]
  - Measles [Unknown]
  - Flushing [Unknown]

NARRATIVE: CASE EVENT DATE: 20160502
